FAERS Safety Report 7859098-0 (Version None)
Quarter: 2011Q4

REPORT INFORMATION
  Report Type: 
  Country: None (occurrence: None)
  Receive Date: 20111027
  Receipt Date: 20111019
  Transmission Date: 20120403
  Serious: Yes (Hospitalization)
  Sender: FDA-Public Use
  Company Number: PHHO2011US12831

PATIENT
  Sex: Female
  Weight: 70.4 kg

DRUGS (13)
  1. AMLODIPINE W/BENAZEPRIL [Concomitant]
     Indication: HYPERTENSION
     Dosage: 540 MG, QD
     Route: 048
     Dates: start: 20100923
  2. FOSAMAX [Concomitant]
     Indication: OSTEOPOROSIS
     Dosage: 35 MG, QW
     Route: 048
     Dates: start: 20101001
  3. METOPROLOL TARTRATE [Concomitant]
     Indication: HYPERTENSION
     Dosage: 12.4 MG, QD
     Route: 048
     Dates: start: 20110516
  4. MIRALAX [Concomitant]
     Indication: CONSTIPATION
     Dosage: 17 G, QD
     Route: 048
     Dates: start: 20101007
  5. DOCUSATE SODIUM [Concomitant]
     Indication: CONSTIPATION
     Dosage: 100 MG, TID
     Route: 048
     Dates: start: 20110504
  6. NAMENDA [Concomitant]
     Indication: DEMENTIA ALZHEIMER'S TYPE
     Dosage: 10 MG, BID
     Route: 048
     Dates: start: 20070101
  7. EXELON [Suspect]
     Indication: DEMENTIA ALZHEIMER'S TYPE
     Dosage: 9 MG/5CM2
     Route: 062
     Dates: start: 20110621, end: 20110722
  8. CITALOPRAM HYDROBROMIDE [Concomitant]
     Indication: DEPRESSION
     Dosage: 20 MG, QD
     Route: 048
     Dates: start: 20100101
  9. RISPERDAL [Concomitant]
     Indication: ANXIETY
     Dosage: 0.5 MG, PRN
     Route: 048
     Dates: start: 20100921
  10. ASPIRIN [Concomitant]
     Indication: PROPHYLAXIS
     Dosage: 81 MG, QD
     Route: 048
     Dates: start: 20110414
  11. ZOCOR [Concomitant]
     Indication: HYPERCHOLESTEROLAEMIA
     Dosage: 40 MG, QD
     Route: 048
     Dates: start: 20110223
  12. VITAMIN D [Concomitant]
  13. CALCIUM CARBONATE [Concomitant]
     Indication: SUPPLEMENTATION THERAPY
     Dosage: 600400 MG, QD
     Route: 048
     Dates: start: 20101004

REACTIONS (15)
  - HAEMOGLOBIN DECREASED [None]
  - DEHYDRATION [None]
  - DROOLING [None]
  - BLOOD GLUCOSE INCREASED [None]
  - RED BLOOD CELL COUNT DECREASED [None]
  - HEART RATE DECREASED [None]
  - HAEMATOCRIT DECREASED [None]
  - MENTAL STATUS CHANGES [None]
  - ACTIVITIES OF DAILY LIVING IMPAIRED [None]
  - BLOOD POTASSIUM DECREASED [None]
  - HYPOPHAGIA [None]
  - ABASIA [None]
  - SOMNOLENCE [None]
  - BLOOD CALCIUM DECREASED [None]
  - BLOOD CHLORIDE INCREASED [None]
